FAERS Safety Report 4872118-0 (Version None)
Quarter: 2005Q4

REPORT INFORMATION
  Report Type: 
  Country: None (occurrence: None)
  Receive Date: 20051230
  Receipt Date: 20051219
  Transmission Date: 20060501
  Serious: Yes (Other)
  Sender: FDA-Public Use
  Company Number: 2005170720

PATIENT
  Age: 67 Year
  Sex: Female
  Weight: 74.8435 kg

DRUGS (9)
  1. LIPITOR [Suspect]
     Indication: BLOOD CHOLESTEROL
     Dosage: 40 MG (40 MG, 1 IN 1 D)/2 YEARS AGO
  2. ACCUPRIL [Suspect]
     Indication: HYPERTENSION
  3. PLAVIX [Concomitant]
  4. AMARYL [Concomitant]
  5. PREVACID [Concomitant]
  6. IRON (IRON) [Concomitant]
  7. GLUCOPHAGE XR (METFORMIN HYDROCHLORIDE) [Concomitant]
  8. PAXIL [Concomitant]
  9. XANAX [Concomitant]

REACTIONS (1)
  - COLON CANCER [None]
